FAERS Safety Report 5859523-0 (Version None)
Quarter: 2008Q3

REPORT INFORMATION
  Report Type: 
  Country: None (occurrence: None)
  Receive Date: 20080827
  Receipt Date: 20080821
  Transmission Date: 20090109
  Serious: Yes (Life-Threatening, Other)
  Sender: FDA-Public Use
  Company Number: A0734374A

PATIENT
  Age: 54 Year
  Sex: Female
  Weight: 60 kg

DRUGS (1)
  1. LAPATINIB [Suspect]
     Indication: CERVIX CARCINOMA
     Dosage: 1500MG PER DAY
     Route: 048
     Dates: start: 20080105

REACTIONS (1)
  - TUMOUR HAEMORRHAGE [None]
